FAERS Safety Report 9181020 (Version 1)
Quarter: 2013Q1

REPORT INFORMATION
  Report Type: Spontaneous
  Country: US (occurrence: None)
  Receive Date: 20130320
  Receipt Date: 20130320
  Transmission Date: 20140127
  Serious: Yes (Other)
  Sender: FDA-Public Use
  Company Number: ACO_34799_2013

PATIENT
  Sex: Female
  Weight: 122.9 kg

DRUGS (18)
  1. AMPYRA (DALFAMPRIDINE) TABLET, 10MG [Suspect]
     Indication: MULTIPLE SCLEROSIS
     Route: 048
     Dates: start: 201211
  2. BETASERON [Suspect]
     Indication: PRODUCT USED FOR UNKNOWN INDICATION
     Dates: end: 20130109
  3. DIOVAN (VALSARTAN) [Concomitant]
  4. AMBIEN (ZOLPIDEM TARTRATE) [Concomitant]
  5. TOPAMAX (TOPIRAMATE) [Concomitant]
  6. TIZANIDINE (TIZANIDINE HYDROCHLORIDE) [Concomitant]
  7. PHENERGAN (PROMETHAZINE HYDROCHLORIDE) [Concomitant]
  8. FIORICET (BUTALBITAL, CAFFEINE, PHARACETAMOL) [Concomitant]
  9. PRAMIPEXOLE DIHYDROCHLORIDE (PRAMIPEXOLE DIHYDROCHLORIDE) [Concomitant]
  10. MELOXICAM (MELOXICAM) [Concomitant]
  11. LORATIDINE [Concomitant]
  12. LEVOTHYROXINE SODIUM (LEVOTHYROXINE SODIUM) [Concomitant]
  13. PRISTIQ (DESVENLAFAXINE SUCCINATE) [Concomitant]
  14. CRESTOR (ROSUVASTATIN CACLIUM) [Concomitant]
  15. LYRICA (PREGABALIN) [Concomitant]
  16. GABAPENTIN (GABAPENTIN) [Concomitant]
  17. FAMCICLOVIR (FAMCICLOVIR) [Concomitant]
  18. VITAMIN B12 (CYANOCOBALAMIN) [Concomitant]

REACTIONS (3)
  - Thrombocytopenia [None]
  - Leukaemia [None]
  - Leukopenia [None]
